FAERS Safety Report 6576439-5 (Version None)
Quarter: 2010Q1

REPORT INFORMATION
  Report Type: 
  Country: None (occurrence: None)
  Receive Date: 20100210
  Receipt Date: 20100202
  Transmission Date: 20100710
  Serious: Yes (Other)
  Sender: FDA-Public Use
  Company Number: PHHY2009CO03129

PATIENT
  Sex: Female

DRUGS (1)
  1. TEGRETOL RETARD [Suspect]
     Dosage: 400 MG
     Route: 048

REACTIONS (1)
  - CONVULSION [None]
